FAERS Safety Report 17209509 (Version 1)
Quarter: 2019Q4

REPORT INFORMATION
  Report Type: Spontaneous
  Country: US (occurrence: US)
  Receive Date: 20191227
  Receipt Date: 20191227
  Transmission Date: 20200122
  Serious: No
  Sender: FDA-Public Use
  Company Number: US-IPSEN BIOPHARMACEUTICALS, INC.-2019-25952

PATIENT
  Age: 6 Year
  Sex: Male
  Weight: 19.1 kg

DRUGS (7)
  1. CORTEF [Concomitant]
     Active Substance: HYDROCORTISONE
  2. DYSPORT [Suspect]
     Active Substance: ABOBOTULINUMTOXINA
     Indication: MUSCLE SPASTICITY
  3. DYSPORT [Suspect]
     Active Substance: ABOBOTULINUMTOXINA
     Indication: OFF LABEL USE
  4. DYSPORT [Suspect]
     Active Substance: ABOBOTULINUMTOXINA
     Indication: MUSCLE SPASTICITY
     Dosage: 120 U BILATERAL HIP ABDUCTORS, 120 BILATERAL MEDIAL HAMSTRINGS, 60 UNITS RIGHT GASTRIC, 40 UNITS IN
     Route: 030
     Dates: start: 20190626, end: 20190626
  5. BACLOFEN. [Concomitant]
     Active Substance: BACLOFEN
  6. FLORINEF ACETATE [Concomitant]
     Active Substance: FLUDROCORTISONE ACETATE
  7. SOLU-CORTEF [Concomitant]
     Active Substance: HYDROCORTISONE SODIUM SUCCINATE

REACTIONS (5)
  - Off label use [Unknown]
  - Fatigue [Unknown]
  - Posture abnormal [Unknown]
  - Asthenia [Unknown]
  - Feeling abnormal [Unknown]

NARRATIVE: CASE EVENT DATE: 2019
